FAERS Safety Report 5019441-7 (Version None)
Quarter: 2006Q2

REPORT INFORMATION
  Report Type: 
  Country: None (occurrence: None)
  Receive Date: 20060530
  Receipt Date: 20060516
  Transmission Date: 20061013
  Serious: Yes (Other)
  Sender: FDA-Public Use
  Company Number: 200613154BWH

PATIENT
  Sex: Female

DRUGS (6)
  1. AVELOX [Suspect]
     Indication: EAR INFECTION
     Dosage: ORAL
     Route: 048
     Dates: start: 20060309, end: 20060322
  2. AVELOX [Suspect]
     Indication: EAR INFECTION
     Dosage: ORAL
     Route: 048
     Dates: start: 20060330, end: 20060408
  3. CIPODEX [Concomitant]
  4. FLOXIN OTIC [Concomitant]
  5. LOTRIMIN [Concomitant]
  6. METHYLPREDNISOLONE [Concomitant]

REACTIONS (5)
  - ABORTION SPONTANEOUS [None]
  - DRUG EXPOSURE BEFORE PREGNANCY [None]
  - HAEMORRHOIDS [None]
  - THERAPY NON-RESPONDER [None]
  - TYMPANIC MEMBRANE PERFORATION [None]
